FAERS Safety Report 6923144-9 (Version None)
Quarter: 2010Q3

REPORT INFORMATION
  Report Type: 
  Country: None (occurrence: None)
  Receive Date: 20100813
  Receipt Date: 20100804
  Transmission Date: 20110219
  Serious: Yes (Other)
  Sender: FDA-Public Use
  Company Number: JP-ROCHE-677941

PATIENT
  Sex: Male
  Weight: 38 kg

DRUGS (5)
  1. XELODA [Suspect]
     Indication: LARGE INTESTINE CARCINOMA
     Route: 048
     Dates: start: 20091124, end: 20091126
  2. ELPLAT [Concomitant]
     Route: 041
     Dates: start: 20091124
  3. MORPHINE HYDROCHLORIDE [Concomitant]
     Dosage: DOSAGE FORM: PERORAL LIQUID PREPARATION
     Route: 048
     Dates: start: 20091120
  4. LOXOPROFEN [Concomitant]
     Route: 048
     Dates: start: 20091008
  5. ZYPREXA [Concomitant]
     Route: 046
     Dates: start: 20091116

REACTIONS (2)
  - ALTERED STATE OF CONSCIOUSNESS [None]
  - LEUKOENCEPHALOPATHY [None]
